FAERS Safety Report 7343735-3 (Version None)
Quarter: 2011Q1

REPORT INFORMATION
  Report Type: 
  Country: None (occurrence: None)
  Receive Date: 20110310
  Receipt Date: 20101213
  Transmission Date: 20110831
  Serious: No
  Sender: FDA-Public Use
  Company Number: A0899500A

PATIENT
  Age: 44 Year
  Sex: Female

DRUGS (2)
  1. NICODERM CQ [Suspect]
  2. NICORETTE [Suspect]

REACTIONS (14)
  - BLOOD PRESSURE DECREASED [None]
  - FAECAL INCONTINENCE [None]
  - PALPITATIONS [None]
  - ASTHENIA [None]
  - NICOTINE DEPENDENCE [None]
  - INTENTIONAL DRUG MISUSE [None]
  - ABDOMINAL DISCOMFORT [None]
  - DECREASED APPETITE [None]
  - WEIGHT DECREASED [None]
  - FATIGUE [None]
  - DIARRHOEA [None]
  - NAUSEA [None]
  - MALAISE [None]
  - DRUG ADMINISTRATION ERROR [None]
